FAERS Safety Report 21772713 (Version 1)
Quarter: 2022Q4

REPORT INFORMATION
  Report Type: Report from Study
  Country: JP (occurrence: JP)
  Receive Date: 20221223
  Receipt Date: 20221223
  Transmission Date: 20230112
  Serious: Yes (Other)
  Sender: FDA-Public Use
  Company Number: JP-SUN PHARMACEUTICAL INDUSTRIES LTD-2022R1-370334

PATIENT
  Weight: .74 kg

DRUGS (4)
  1. INDOMETHACIN [Suspect]
     Active Substance: INDOMETHACIN
     Indication: Patent ductus arteriosus
     Dosage: UNK
     Route: 065
  2. INDOMETHACIN [Suspect]
     Active Substance: INDOMETHACIN
     Indication: Thoracic operation
  3. FUROSEMIDE [Suspect]
     Active Substance: FUROSEMIDE
     Indication: Patent ductus arteriosus
     Dosage: UNK
     Route: 042
  4. FUROSEMIDE [Suspect]
     Active Substance: FUROSEMIDE
     Indication: Thoracic operation

REACTIONS (2)
  - Pulmonary haemorrhage [Unknown]
  - Pneumothorax [Unknown]
